FAERS Safety Report 8477818-1 (Version None)
Quarter: 2012Q2

REPORT INFORMATION
  Report Type: 
  Country: None (occurrence: None)
  Receive Date: 20120629
  Receipt Date: 20120625
  Transmission Date: 20120825
  Serious: Yes (Hospitalization, Other)
  Sender: FDA-Public Use
  Company Number: CO-PFIZER INC-2012153574

PATIENT
  Age: 12 Year
  Sex: Male

DRUGS (2)
  1. LEVOTHYROXINE [Concomitant]
     Indication: HORMONE LEVEL ABNORMAL
     Dosage: UNK
     Dates: start: 20101001
  2. GENOTROPIN [Suspect]
     Indication: BODY HEIGHT BELOW NORMAL
     Dosage: UNK
     Dates: start: 20100801, end: 20101001

REACTIONS (1)
  - CRANIOPHARYNGIOMA [None]
